FAERS Safety Report 20941174 (Version 1)
Quarter: 2022Q2

REPORT INFORMATION
  Report Type: Spontaneous
  Country: RU (occurrence: RU)
  Receive Date: 20220609
  Receipt Date: 20220609
  Transmission Date: 20220720
  Serious: Yes (Hospitalization, Other)
  Sender: FDA-Public Use
  Company Number: RU-LUPIN PHARMACEUTICALS INC.-2022-08452

PATIENT
  Age: 28 Year
  Sex: Male

DRUGS (2)
  1. PAROXETINE [Suspect]
     Active Substance: PAROXETINE
     Indication: Depression
     Dosage: 20 MG, QD
     Route: 065
  2. RETINOL [Suspect]
     Active Substance: RETINOL
     Indication: Acne
     Dosage: UNK
     Route: 065

REACTIONS (6)
  - Drug-induced liver injury [Recovering/Resolving]
  - Cardiac failure [Recovering/Resolving]
  - Restrictive cardiomyopathy [Recovering/Resolving]
  - Haemochromatosis [Recovering/Resolving]
  - Hypervitaminosis A [Recovering/Resolving]
  - Disease progression [Recovering/Resolving]

NARRATIVE: CASE EVENT DATE: 20190201
